FAERS Safety Report 9399869 (Version 1)
Quarter: 2013Q3

REPORT INFORMATION
  Report Type: Spontaneous
  Country: JP (occurrence: JP)
  Receive Date: 20130715
  Receipt Date: 20130715
  Transmission Date: 20140515
  Serious: Yes (Hospitalization, Other)
  Sender: FDA-Public Use
  Company Number: PHHY2013JP074442

PATIENT
  Sex: 0

DRUGS (1)
  1. EXFORGE [Suspect]
     Dosage: 4 DF, DAILY
     Route: 048

REACTIONS (5)
  - Hyponatraemia [Unknown]
  - Overdose [Unknown]
  - Fall [Unknown]
  - Nervous system disorder [Unknown]
  - Memory impairment [Unknown]
